FAERS Safety Report 15880352 (Version 1)
Quarter: 2019Q1

REPORT INFORMATION
  Report Type: Spontaneous
  Country: JP (occurrence: JP)
  Receive Date: 20190128
  Receipt Date: 20190128
  Transmission Date: 20190417
  Serious: Yes (Other)
  Sender: FDA-Public Use
  Company Number: JP-HQ SPECIALTY-JP-2019INT000012

PATIENT

DRUGS (3)
  1. CISPLATIN. [Suspect]
     Active Substance: CISPLATIN
     Indication: OESOPHAGEAL CARCINOMA
     Dosage: 75 MG/M2, QD, ON DAYS 1 AND 29
     Route: 065
  2. 5-FLUOROURACIL                     /00098801/ [Suspect]
     Active Substance: FLUOROURACIL
     Indication: OESOPHAGEAL CARCINOMA
     Dosage: 1000 MG/M2, QD, DAYS 1?4 AND 29?32
     Route: 065
  3. RADIOTHERAPY [Suspect]
     Active Substance: RADIATION THERAPY
     Indication: OESOPHAGEAL CARCINOMA
     Dosage: UNK
     Route: 065

REACTIONS (1)
  - Oesophagitis [Unknown]
